FAERS Safety Report 9524513 (Version 1)
Quarter: 2013Q3

REPORT INFORMATION
  Report Type: Spontaneous
  Country: US (occurrence: US)
  Receive Date: 20130916
  Receipt Date: 20130916
  Transmission Date: 20140515
  Serious: No
  Sender: FDA-Public Use
  Company Number: US-PFIZER INC-2013265540

PATIENT
  Sex: Female

DRUGS (2)
  1. LYRICA [Suspect]
     Indication: DIABETIC NEUROPATHY
     Dosage: 150 MG (BY TAKING 2 CAPSULES OF 75MG), 3X/DAY
     Route: 048
     Dates: start: 201309
  2. LYRICA [Suspect]
     Dosage: 450 MG, UNK

REACTIONS (5)
  - Intentional drug misuse [Unknown]
  - Hypoaesthesia [Unknown]
  - Pruritus [Unknown]
  - Muscle twitching [Unknown]
  - Increased appetite [Unknown]
